FAERS Safety Report 15987966 (Version 1)
Quarter: 2019Q1

REPORT INFORMATION
  Report Type: Spontaneous
  Country: FR (occurrence: FR)
  Receive Date: 20190220
  Receipt Date: 20190220
  Transmission Date: 20190418
  Serious: Yes (Hospitalization)
  Sender: FDA-Public Use
  Company Number: FR-GUERBET-FR-20190069

PATIENT
  Age: 78 Year
  Sex: Female

DRUGS (1)
  1. OPTIJECT [Suspect]
     Active Substance: IOVERSOL
     Indication: COMPUTERISED TOMOGRAM
     Route: 042
     Dates: start: 20171215, end: 20171215

REACTIONS (1)
  - Rash pruritic [Recovered/Resolved]

NARRATIVE: CASE EVENT DATE: 20171224
